FAERS Safety Report 10793200 (Version 1)
Quarter: 2015Q1

REPORT INFORMATION
  Report Type: Spontaneous
  Country: DK (occurrence: DK)
  Receive Date: 20150213
  Receipt Date: 20150213
  Transmission Date: 20150721
  Serious: Yes (Hospitalization)
  Sender: FDA-Public Use
  Company Number: DK-ABBVIE-15K-044-1344349-00

PATIENT
  Age: 48 Year
  Sex: Male

DRUGS (1)
  1. HUMIRA [Suspect]
     Active Substance: ADALIMUMAB
     Indication: CROHN^S DISEASE
     Route: 065

REACTIONS (10)
  - Heart rate irregular [Unknown]
  - Paraesthesia [Unknown]
  - CSF white blood cell count decreased [Unknown]
  - Protein total increased [Unknown]
  - Skin burning sensation [Unknown]
  - Tremor [Unknown]
  - Renal function test abnormal [Unknown]
  - Epstein-Barr virus test positive [Unknown]
  - Spinal cord infection [Recovering/Resolving]
  - CSF white blood cell count increased [Unknown]

NARRATIVE: CASE EVENT DATE: 201402
